FAERS Safety Report 16125458 (Version 2)
Quarter: 2019Q2

REPORT INFORMATION
  Report Type: Spontaneous
  Country: US (occurrence: US)
  Receive Date: 20190327
  Receipt Date: 20190411
  Transmission Date: 20190711
  Serious: No
  Sender: FDA-Public Use
  Company Number: US-AMGEN-USASP2019046455

PATIENT
  Age: 61 Year
  Sex: Female
  Weight: 79.37 kg

DRUGS (1)
  1. REPATHA [Suspect]
     Active Substance: EVOLOCUMAB
     Indication: BLOOD CHOLESTEROL INCREASED
     Dosage: 140 MILLIGRAM, Q2WK
     Route: 065
     Dates: end: 20190227

REACTIONS (3)
  - Cough [Unknown]
  - Rash [Recovered/Resolved]
  - Rash vesicular [Recovering/Resolving]

NARRATIVE: CASE EVENT DATE: 20190227
